FAERS Safety Report 18623228 (Version 1)
Quarter: 2020Q4

REPORT INFORMATION
  Report Type: Spontaneous
  Country: US (occurrence: US)
  Receive Date: 20201215
  Receipt Date: 20201215
  Transmission Date: 20210114
  Serious: Yes (Death)
  Sender: FDA-Public Use
  Company Number: None

PATIENT
  Age: 69 Year
  Sex: Female
  Weight: 57.3 kg

DRUGS (36)
  1. EPCLUSA [Suspect]
     Active Substance: SOFOSBUVIR\VELPATASVIR
     Indication: HEPATITIS C
     Dosage: ?          OTHER DOSE:400MG/100MG;?
     Route: 048
     Dates: start: 20190102, end: 20190117
  2. ATROPINE-DIPHENOXYLATE [Concomitant]
  3. TACROLIMUS. [Concomitant]
     Active Substance: TACROLIMUS
  4. PROCHLORPERAZINE. [Concomitant]
     Active Substance: PROCHLORPERAZINE
  5. LABETALOL [Concomitant]
     Active Substance: LABETALOL\LABETALOL HYDROCHLORIDE
  6. PROPOFOL. [Concomitant]
     Active Substance: PROPOFOL
  7. SEVELAMER [Concomitant]
     Active Substance: SEVELAMER
  8. CIPROFLOXACIN. [Concomitant]
     Active Substance: CIPROFLOXACIN
  9. PREDNISONE. [Concomitant]
     Active Substance: PREDNISONE
  10. MYCOPHENOLIC ACID. [Concomitant]
     Active Substance: MYCOPHENOLIC ACID
  11. ALBUMIN [Concomitant]
     Active Substance: ALBUMIN HUMAN
  12. FERRIC CITRATE [Concomitant]
     Active Substance: TETRAFERRIC TRICITRATE DECAHYDRATE
  13. ONDANSETRON [Concomitant]
     Active Substance: ONDANSETRON
  14. ANTITHYMOCYTE [Concomitant]
     Active Substance: LAPINE T-LYMPHOCYTE IMMUNE GLOBULIN
  15. CLOTRIMAZOLE. [Concomitant]
     Active Substance: CLOTRIMAZOLE
  16. INSULIN LISPRO [Concomitant]
     Active Substance: INSULIN LISPRO
  17. EPHEDRINE. [Concomitant]
     Active Substance: EPHEDRINE
  18. LIDOCAINE. [Concomitant]
     Active Substance: LIDOCAINE
  19. FAMOTIDINE. [Concomitant]
     Active Substance: FAMOTIDINE
  20. SERTRALINE [Concomitant]
     Active Substance: SERTRALINE HYDROCHLORIDE
  21. INSULIN [Concomitant]
     Active Substance: INSULIN NOS
  22. OXYCODONE [Concomitant]
     Active Substance: OXYCODONE
  23. CISATRACURIUM. [Concomitant]
     Active Substance: CISATRACURIUM
  24. MANNITOL. [Concomitant]
     Active Substance: MANNITOL
  25. BASILIXIMAB [Concomitant]
     Active Substance: BASILIXIMAB
  26. FENTANYL. [Concomitant]
     Active Substance: FENTANYL
  27. GLYCOPYRROLATE. [Concomitant]
     Active Substance: GLYCOPYRROLATE
  28. METHYLPREDNISOLONE. [Concomitant]
     Active Substance: METHYLPREDNISOLONE
  29. SODIUM CHLORIDE. [Concomitant]
     Active Substance: SODIUM CHLORIDE
  30. NEOSTIGMINE. [Concomitant]
     Active Substance: NEOSTIGMINE METHYLSULFATE
  31. ACETAMINOPHEN. [Concomitant]
     Active Substance: ACETAMINOPHEN
  32. ONDANSETRON [Concomitant]
     Active Substance: ONDANSETRON
  33. CEFAZOLIN [Concomitant]
     Active Substance: CEFAZOLIN
  34. FAMOTIDINE. [Concomitant]
     Active Substance: FAMOTIDINE
  35. FUROSEMIDE. [Concomitant]
     Active Substance: FUROSEMIDE
  36. MIDAZOLAM. [Concomitant]
     Active Substance: MIDAZOLAM

REACTIONS (5)
  - Sepsis [None]
  - Hypotension [None]
  - Cardiac arrest [None]
  - Hypoxia [None]
  - Viral infection [None]

NARRATIVE: CASE EVENT DATE: 20190112
